FAERS Safety Report 25801956 (Version 1)
Quarter: 2025Q3

REPORT INFORMATION
  Report Type: Spontaneous
  Country: EU (occurrence: EU)
  Receive Date: 20250915
  Receipt Date: 20250915
  Transmission Date: 20251020
  Serious: Yes (Hospitalization)
  Sender: AUROBINDO
  Company Number: EU-TEVA-VS-3323722

PATIENT
  Age: 32 Year
  Sex: Female

DRUGS (10)
  1. OLANZAPINE [Suspect]
     Active Substance: OLANZAPINE
     Indication: Psychotic disorder
     Route: 065
  2. QUETIAPINE [Suspect]
     Active Substance: QUETIAPINE
     Indication: Mania
     Route: 065
  3. QUETIAPINE [Suspect]
     Active Substance: QUETIAPINE
     Route: 065
  4. ZIPRASIDONE [Suspect]
     Active Substance: ZIPRASIDONE
     Indication: Mania
     Route: 065
  5. LITHIUM [Suspect]
     Active Substance: LITHIUM
     Indication: Mania
     Dosage: 1650 MILLIGRAM, ONCE A DAY
     Route: 065
  6. LITHIUM [Suspect]
     Active Substance: LITHIUM
     Dosage: 1350 MILLIGRAM, ONCE A DAY (REDUCTION IN DAILY DOSE)
     Route: 065
  7. LITHIUM [Suspect]
     Active Substance: LITHIUM
     Dosage: 750 MILLIGRAM, ONCE A DAY
     Route: 065
  8. LITHIUM [Suspect]
     Active Substance: LITHIUM
     Dosage: 300 MILLIGRAM, ONCE A DAY
     Route: 065
  9. HALOPERIDOL [Suspect]
     Active Substance: HALOPERIDOL
     Indication: Psychotic disorder
     Route: 065
  10. CLONAZEPAM [Suspect]
     Active Substance: CLONAZEPAM
     Indication: Mania
     Route: 065

REACTIONS (4)
  - Mania [Recovering/Resolving]
  - Weight increased [Unknown]
  - Normal newborn [Unknown]
  - Maternal exposure during pregnancy [Unknown]
